FAERS Safety Report 10793724 (Version 14)
Quarter: 2020Q4

REPORT INFORMATION
  Report Type: Spontaneous
  Country: US (occurrence: US)
  Receive Date: 20150213
  Receipt Date: 20201111
  Transmission Date: 20210113
  Serious: Yes (Life-Threatening, Hospitalization, Other)
  Sender: FDA-Public Use
  Company Number: US-PFIZER INC-2015055713

PATIENT
  Age: 82 Year
  Sex: Female

DRUGS (34)
  1. OMEGA [Concomitant]
     Dosage: UNK
  2. CLARITIN [Concomitant]
     Active Substance: LORATADINE
     Dosage: 10 MG, UNK
  3. FLEXERIL [Concomitant]
     Active Substance: CYCLOBENZAPRINE HYDROCHLORIDE
     Dosage: 10 MG, UNK
  4. FLOVENT DISKUS [Concomitant]
     Active Substance: FLUTICASONE PROPIONATE
     Dosage: UNK (100 MCG/ACTUATION BLISTER WITH DEVICE) AS DIRECTED EVERY NIGHT AS DIRECTED)
  5. NEURONTIN [Concomitant]
     Active Substance: GABAPENTIN
     Dosage: 800 MG, UNK
  6. LYRICA [Concomitant]
     Active Substance: PREGABALIN
     Indication: DIABETIC NEUROPATHY
  7. CELEBREX [Suspect]
     Active Substance: CELECOXIB
     Indication: PAIN
     Dosage: UNK, 1X/DAY (ONCE DAILY)
  8. ASPIRIN 81 [Concomitant]
     Active Substance: ASPIRIN
     Dosage: 81 MG, UNK
  9. CALCIUM 600 [Concomitant]
     Active Substance: CALCIUM
     Dosage: 600 MG, UNK
  10. COENZYME Q10 [Concomitant]
     Active Substance: DIETARY SUPPLEMENT\UBIDECARENONE
     Dosage: 100 MG, UNK
  11. JANUVIA [Concomitant]
     Active Substance: SITAGLIPTIN PHOSPHATE
     Dosage: 100 MG, UNK
  12. TYLENOL [Concomitant]
     Active Substance: ACETAMINOPHEN
     Dosage: 975 MG, AS NEEDED (3 TABLET BY MOUTH ONCE A DAY AS NEEDED)
     Route: 048
  13. LIPITOR [Concomitant]
     Active Substance: ATORVASTATIN CALCIUM
     Dosage: 20 MG, 1X/DAY
     Route: 048
  14. VITAMIN D3 [Concomitant]
     Active Substance: CHOLECALCIFEROL
     Dosage: 400 IU, UNK
  15. CELEBREX [Suspect]
     Active Substance: CELECOXIB
     Indication: POLYARTHRITIS
     Dosage: 200 MG, 1X/DAY
     Route: 048
     Dates: start: 1998
  16. PROCARDIA XL [Suspect]
     Active Substance: NIFEDIPINE
     Dosage: 30 MG, DAILY
     Route: 048
  17. DYAZIDE [Concomitant]
     Active Substance: HYDROCHLOROTHIAZIDE\TRIAMTERENE
     Dosage: UNK
  18. NASONEX [Concomitant]
     Active Substance: MOMETASONE FUROATE
     Dosage: UNK, 1X/DAY (50 MCG/ACTUATION SPRAY,NON-AEROSOL) AS DIRECTED EVERY NIGHT)
  19. VITAMIN C [Concomitant]
     Active Substance: ASCORBIC ACID
     Dosage: 500 MG, UNK
  20. ALPHA LIPOIC ACID [Concomitant]
     Active Substance: .ALPHA.-LIPOIC ACID
     Dosage: 600 MG, UNK (2 CAPSULE BY MOUTH)
     Route: 048
  21. ATENOLOL. [Concomitant]
     Active Substance: ATENOLOL
     Dosage: 25 MG, UNK
  22. SYNTHROID [Concomitant]
     Active Substance: LEVOTHYROXINE SODIUM
     Dosage: 88 UG, UNK
  23. VITAMIN B-1 [Concomitant]
     Active Substance: THIAMINE HYDROCHLORIDE
     Dosage: 100 MG, UNK
  24. LYRICA [Concomitant]
     Active Substance: PREGABALIN
     Indication: PAIN
     Dosage: UNK
  25. AMARYL [Concomitant]
     Active Substance: GLIMEPIRIDE
     Dosage: 2 MG, UNK
  26. CALCIUM 600 [Concomitant]
     Active Substance: CALCIUM
     Dosage: 1500 MG, UNK
  27. DEMEROL [Concomitant]
     Active Substance: MEPERIDINE HYDROCHLORIDE
     Indication: PAIN
     Dosage: 100 MG, UNK
  28. GLUCOPHAGE [Concomitant]
     Active Substance: METFORMIN HYDROCHLORIDE
     Dosage: 600 MG, UNK
  29. VENTOLIN HFA [Concomitant]
     Active Substance: ALBUTEROL SULFATE
     Dosage: UNK (90 MCG/ACTUATION HFA AEROSOL LNHALER)
  30. VITAMIN B COMPLEX [Concomitant]
     Active Substance: CYANOCOBALAMIN\DEXPANTHENOL\NIACINAMIDE\PYRIDOXINE HYDROCHLORIDE\RIBOFLAVIN 5^-PHOSPHATE SODIUM\THIAMINE HYDROCHLORIDE\VITAMIN B COMPLEX
     Dosage: UNK
  31. DEMEROL [Concomitant]
     Active Substance: MEPERIDINE HYDROCHLORIDE
     Dosage: 200 MG
  32. GLUCOSAMINE + CHONDROITIN SUL. NA [Concomitant]
     Dosage: UNK
  33. METANX [Concomitant]
     Active Substance: LEVOMEFOLATE CALCIUM\METHYLCOBALAMIN\PYRIDOXAL PHOSPHATE ANHYDROUS
     Dosage: UNK (CALCIUM MEFOLINATE, PYRIDOXINE HYDROCHLORIDE: 3MG, VITAMIN: 25MG B12 NOS: 2MG)
  34. PRILOSEC [Concomitant]
     Active Substance: OMEPRAZOLE MAGNESIUM
     Dosage: 20 MG, 1X/DAY (AS DIRECTED)

REACTIONS (19)
  - Cardiac disorder [Unknown]
  - Haemorrhage [Unknown]
  - Balance disorder [Unknown]
  - Urinary tract infection [Unknown]
  - Spinal fracture [Unknown]
  - Fall [Unknown]
  - Breast cancer [Unknown]
  - Near death experience [Unknown]
  - Loss of consciousness [Unknown]
  - Head injury [Unknown]
  - Fall [Unknown]
  - Cerebral disorder [Unknown]
  - Vertigo [Unknown]
  - Nasopharyngitis [Recovering/Resolving]
  - Heart rate decreased [Recovered/Resolved]
  - Skull fracture [Unknown]
  - Thyrotoxic crisis [Unknown]
  - Speech disorder [Unknown]
  - Concussion [Unknown]

NARRATIVE: CASE EVENT DATE: 2015
